FAERS Safety Report 24782509 (Version 1)
Quarter: 2024Q4

REPORT INFORMATION
  Report Type: Spontaneous
  Country: RU (occurrence: RU)
  Receive Date: 20241227
  Receipt Date: 20241227
  Transmission Date: 20250115
  Serious: Yes (Other)
  Sender: SERVIER
  Company Number: None

PATIENT

DRUGS (11)
  1. ONCASPAR [Suspect]
     Active Substance: PEGASPARGASE
     Indication: Lymphocytic leukaemia
     Dosage: 690 IU, UNK
     Route: 042
     Dates: start: 20240811, end: 20241206
  2. MERCAPTOPURINE [Concomitant]
     Active Substance: MERCAPTOPURINE
     Indication: Lymphocytic leukaemia
     Dosage: 50 MG IN A WEEK
     Route: 048
     Dates: start: 20240918, end: 20241205
  3. METHOTREXATE [Concomitant]
     Active Substance: METHOTREXATE
     Indication: Lymphocytic leukaemia
     Dosage: 50 MG IN A WEEK
     Route: 030
     Dates: start: 20240918
  4. METHOTREXATE [Concomitant]
     Active Substance: METHOTREXATE
     Dosage: 12 MG
     Route: 037
     Dates: start: 20240906
  5. DAUNORUBICIN HYDROCHLORIDE [Concomitant]
     Active Substance: DAUNORUBICIN HYDROCHLORIDE
     Indication: Lymphocytic leukaemia
     Dosage: 31 MG, UNK
     Route: 042
     Dates: start: 20240816, end: 20240816
  6. DEXAMETHASONE [Concomitant]
     Active Substance: DEXAMETHASONE
     Indication: Lymphocytic leukaemia
     Dosage: 4 MG, UNK
     Route: 042
     Dates: start: 20240906, end: 20240913
  7. VINCRISTINE RONC [Concomitant]
     Indication: Lymphocytic leukaemia
     Dosage: 1.5 MG/M2, UNK
     Route: 042
     Dates: start: 20240906, end: 20240913
  8. CYTARABINE [Concomitant]
     Active Substance: CYTARABINE
     Indication: Lymphocytic leukaemia
     Dosage: 30 MG, UNK
     Route: 037
     Dates: start: 20240906
  9. PREDNISOLONE [Concomitant]
     Active Substance: PREDNISOLONE
     Indication: Lymphocytic leukaemia
     Dosage: 10 MG, UNK
     Route: 037
     Dates: start: 20240906
  10. ONDANSETRON [Concomitant]
     Active Substance: ONDANSETRON
     Indication: Lymphocytic leukaemia
     Dosage: 5 MG/M2, UNK
     Route: 042
     Dates: start: 20240906
  11. Decefim [Concomitant]
     Indication: Bronchitis
     Dosage: 100 MG/KG, UNK
     Route: 042
     Dates: start: 20240920, end: 20241003

REACTIONS (2)
  - Urticaria [Recovered/Resolved]
  - Bronchial obstruction [Recovered/Resolved]

NARRATIVE: CASE EVENT DATE: 20241206
